FAERS Safety Report 17570115 (Version 2)
Quarter: 2020Q3

REPORT INFORMATION
  Report Type: Report from Study
  Country: BR (occurrence: BR)
  Receive Date: 20200323
  Receipt Date: 20200930
  Transmission Date: 20201102
  Serious: Yes (Other)
  Sender: FDA-Public Use
  Company Number: BR-BIOGEN-2020BI00851729

PATIENT
  Sex: Male

DRUGS (9)
  1. AVONEX PEN [Suspect]
     Active Substance: INTERFERON BETA-1A
  2. DORENE [Concomitant]
     Active Substance: PREGABALIN
     Indication: PRODUCT USED FOR UNKNOWN INDICATION
     Route: 065
  3. TRAMADOL. [Concomitant]
     Active Substance: TRAMADOL
     Indication: PRODUCT USED FOR UNKNOWN INDICATION
     Route: 065
  4. AVONEX PEN [Suspect]
     Active Substance: INTERFERON BETA-1A
  5. GABAPENTIN. [Concomitant]
     Active Substance: GABAPENTIN
     Indication: PRODUCT USED FOR UNKNOWN INDICATION
     Route: 065
  6. HYDROXYZINE [Concomitant]
     Active Substance: HYDROXYZINE HYDROCHLORIDE
     Indication: PRODUCT USED FOR UNKNOWN INDICATION
     Route: 065
  7. BACLOFEN. [Concomitant]
     Active Substance: BACLOFEN
     Indication: PRODUCT USED FOR UNKNOWN INDICATION
     Route: 065
  8. AVONEX PEN [Suspect]
     Active Substance: INTERFERON BETA-1A
     Indication: MULTIPLE SCLEROSIS
     Route: 030
     Dates: start: 20141015
  9. AVONEX PEN [Suspect]
     Active Substance: INTERFERON BETA-1A

REACTIONS (10)
  - Syncope [Recovered/Resolved]
  - Multiple sclerosis relapse [Recovered/Resolved with Sequelae]
  - Flushing [Not Recovered/Not Resolved]
  - Pyrexia [Recovered/Resolved]
  - Tachycardia [Unknown]
  - Pain [Recovered/Resolved]
  - Peripheral paralysis [Unknown]
  - Multiple sclerosis [Not Recovered/Not Resolved]
  - Dyspnoea [Not Recovered/Not Resolved]
  - Increased bronchial secretion [Unknown]

NARRATIVE: CASE EVENT DATE: 2015
